FAERS Safety Report 14719830 (Version 1)
Quarter: 2018Q1

REPORT INFORMATION
  Report Type: Spontaneous
  Country: US (occurrence: US)
  Receive Date: 20180330
  Receipt Date: 20180330
  Transmission Date: 20180509
  Serious: Yes (Other)
  Sender: FDA-Public Use
  Company Number: None

PATIENT
  Age: 61 Year
  Sex: Male
  Weight: 93 kg

DRUGS (2)
  1. OXYMETAZOLINE [Suspect]
     Active Substance: OXYMETAZOLINE
     Indication: GASTROINTESTINAL TUBE INSERTION
     Dosage: ?          OTHER FREQUENCY:ONCE;?
     Route: 045
  2. LIDOCAINE. [Suspect]
     Active Substance: LIDOCAINE
     Indication: GASTROINTESTINAL TUBE INSERTION
     Dosage: ?          OTHER FREQUENCY:ONCE;?
     Route: 045

REACTIONS (2)
  - Dyspnoea [None]
  - Tachyarrhythmia [None]

NARRATIVE: CASE EVENT DATE: 20170609
